FAERS Safety Report 23398634 (Version 3)
Quarter: 2024Q1

REPORT INFORMATION
  Report Type: Spontaneous
  Country: US (occurrence: US)
  Receive Date: 20240112
  Receipt Date: 20240305
  Transmission Date: 20240409
  Serious: No
  Sender: FDA-Public Use
  Company Number: US-SANDOZ-SDZ2023US074231

PATIENT
  Sex: Female

DRUGS (1)
  1. ALBUTEROL SULFATE [Suspect]
     Active Substance: ALBUTEROL SULFATE
     Indication: Chronic obstructive pulmonary disease
     Dosage: ONE IN THE MORNING
     Route: 055

REACTIONS (4)
  - Dyspnoea [Unknown]
  - Product dose omission issue [Unknown]
  - Off label use [Unknown]
  - Device delivery system issue [Unknown]
